FAERS Safety Report 5115194-2 (Version None)
Quarter: 2006Q3

REPORT INFORMATION
  Report Type: 
  Country: None (occurrence: None)
  Receive Date: 20060926
  Receipt Date: 20060919
  Transmission Date: 20061208
  Serious: Yes (Other)
  Sender: FDA-Public Use
  Company Number: US-BOEHRINGER INGELHEIM PHARMACEUTICALS, INC.-2006-DE-05036GD

PATIENT
  Age: 20 Year
  Sex: Male

DRUGS (5)
  1. ASPIRIN [Suspect]
     Indication: ANTICOAGULANT THERAPY
  2. DIPYRIDAMOLE [Suspect]
     Indication: ANTICOAGULANT THERAPY
     Dosage: (75 MG) 3 TIMES A DAY
  3. WARFARIN SODIUM [Suspect]
     Indication: ANTICOAGULANT THERAPY
  4. BIVALIRUDIN [Suspect]
     Indication: ANTICOAGULANT THERAPY
     Dosage: 0.5 MG/KG/H STARTING DOSE, WITH TITRATION TO TARGET APTT (INCREASE OF INFUSION RATE BY 20 %; APTT MO
  5. LOW-MOLECULAR-WEIGHT DEXTRAN [Suspect]
     Indication: ANTICOAGULANT THERAPY
     Dosage: 25 ML/H (10 %)

REACTIONS (2)
  - EPISTAXIS [None]
  - INJURY [None]
